FAERS Safety Report 22367575 (Version 15)
Quarter: 2025Q1

REPORT INFORMATION
  Report Type: Report from Study
  Country: US (occurrence: US)
  Receive Date: 20230525
  Receipt Date: 20250331
  Transmission Date: 20250409
  Serious: Yes (Hospitalization, Other)
  Sender: TAKEDA
  Company Number: US-TAKEDA-US202011420

PATIENT
  Sex: Female
  Weight: 64 kg

DRUGS (49)
  1. HUMAN IMMUNOGLOBULIN G\HYALURONIDASE RECOMBINANT HUMAN [Suspect]
     Active Substance: HUMAN IMMUNOGLOBULIN G\HYALURONIDASE (HUMAN RECOMBINANT)
     Indication: Primary immunodeficiency syndrome
     Dosage: 30 GRAM, Q4WEEKS
     Dates: start: 20181016
  2. HUMAN IMMUNOGLOBULIN G\HYALURONIDASE RECOMBINANT HUMAN [Suspect]
     Active Substance: HUMAN IMMUNOGLOBULIN G\HYALURONIDASE (HUMAN RECOMBINANT)
     Indication: Immunodeficiency
     Dosage: 30 GRAM, MONTHLY
  3. HUMAN IMMUNOGLOBULIN G\HYALURONIDASE RECOMBINANT HUMAN [Suspect]
     Active Substance: HUMAN IMMUNOGLOBULIN G\HYALURONIDASE (HUMAN RECOMBINANT)
     Dosage: 30 GRAM, Q4WEEKS
  4. PREDNISONE [Suspect]
     Active Substance: PREDNISONE
     Indication: Product used for unknown indication
  5. COVID-19 VACCINE NOS [Suspect]
     Active Substance: COVID-19 VACCINE
     Indication: Product used for unknown indication
  6. BACTRIM [Concomitant]
     Active Substance: SULFAMETHOXAZOLE\TRIMETHOPRIM
  7. AZITHROMYCIN [Concomitant]
     Active Substance: AZITHROMYCIN
  8. PERCOCET [Concomitant]
     Active Substance: ACETAMINOPHEN\OXYCODONE HYDROCHLORIDE
  9. VANCOMYCIN [Concomitant]
     Active Substance: VANCOMYCIN
  10. DIPHENHYDRAMINE [Concomitant]
     Active Substance: DIPHENHYDRAMINE
  11. ALBUTEROL SULFATE [Concomitant]
     Active Substance: ALBUTEROL SULFATE
  12. SYMBICORT [Concomitant]
     Active Substance: BUDESONIDE\FORMOTEROL FUMARATE DIHYDRATE
  13. EPINEPHRINE [Concomitant]
     Active Substance: EPINEPHRINE
  14. SPIRONOLACTONE [Concomitant]
     Active Substance: SPIRONOLACTONE
  15. RANITIDINE HYDROCHLORIDE [Concomitant]
     Active Substance: RANITIDINE HYDROCHLORIDE
  16. POTASSIUM CHLORIDE [Concomitant]
     Active Substance: POTASSIUM CHLORIDE
  17. QNASL [Concomitant]
     Active Substance: BECLOMETHASONE DIPROPIONATE
  18. DISOPYRAMIDE PHOSPHATE [Concomitant]
     Active Substance: DISOPYRAMIDE PHOSPHATE
  19. ALLEGRA ALLERGY [Concomitant]
     Active Substance: FEXOFENADINE HYDROCHLORIDE
  20. AMITRIPTYLINE HYDROCHLORIDE [Concomitant]
     Active Substance: AMITRIPTYLINE HYDROCHLORIDE
  21. IPRATROPIUM BROMIDE [Concomitant]
     Active Substance: IPRATROPIUM BROMIDE
  22. SPIRIVA RESPIMAT [Concomitant]
     Active Substance: TIOTROPIUM BROMIDE
  23. ACETAMINOPHEN [Concomitant]
     Active Substance: ACETAMINOPHEN
  24. MOVANTIK [Concomitant]
     Active Substance: NALOXEGOL OXALATE
  25. SINGULAIR [Concomitant]
     Active Substance: MONTELUKAST SODIUM
  26. AMOXICILLIN [Concomitant]
     Active Substance: AMOXICILLIN
  27. AZELASTINE HYDROCHLORIDE [Concomitant]
     Active Substance: AZELASTINE HYDROCHLORIDE
  28. SODIUM CHLORIDE [Concomitant]
     Active Substance: SODIUM CHLORIDE
  29. LOSARTAN POTASSIUM [Concomitant]
     Active Substance: LOSARTAN POTASSIUM
  30. VITAMIN B [Concomitant]
     Active Substance: VITAMIN B
  31. ATROPA BELLADONNA\PHENOBARBITAL [Concomitant]
     Active Substance: ATROPA BELLADONNA\PHENOBARBITAL
  32. XARELTO [Concomitant]
     Active Substance: RIVAROXABAN
  33. FOLIC ACID [Concomitant]
     Active Substance: FOLIC ACID
  34. KADIAN [Concomitant]
     Active Substance: MORPHINE SULFATE
  35. LIDOCAINE AND PRILOCAINE [Concomitant]
     Active Substance: LIDOCAINE\PRILOCAINE
  36. PROAIR HFA [Concomitant]
     Active Substance: ALBUTEROL SULFATE
  37. COLACE [Concomitant]
     Active Substance: DOCUSATE SODIUM
  38. DEXILANT [Concomitant]
     Active Substance: DEXLANSOPRAZOLE
  39. MORPHINE SULFATE [Concomitant]
     Active Substance: MORPHINE SULFATE
  40. DIETARY SUPPLEMENT\GRAPE SEED EXTRACT [Concomitant]
     Active Substance: DIETARY SUPPLEMENT\GRAPE SEED EXTRACT
  41. VERAPAMIL [Concomitant]
     Active Substance: VERAPAMIL HYDROCHLORIDE
  42. Calcium d plus [Concomitant]
  43. PROAIR HFA [Concomitant]
     Active Substance: ALBUTEROL SULFATE
  44. BIOTIN [Concomitant]
     Active Substance: BIOTIN
  45. ZANTAC [Concomitant]
     Active Substance: RANITIDINE HYDROCHLORIDE
  46. VITAMIN B12 [Concomitant]
     Active Substance: CYANOCOBALAMIN
  47. DIETARY SUPPLEMENT [Concomitant]
     Active Substance: DIETARY SUPPLEMENT
  48. FAMOTIDINE [Concomitant]
     Active Substance: FAMOTIDINE
  49. DIPHENHYDRAMINE HYDROCHLORIDE [Concomitant]
     Active Substance: DIPHENHYDRAMINE HYDROCHLORIDE

REACTIONS (30)
  - Pneumonia [Unknown]
  - Blood pressure increased [Unknown]
  - Headache [Unknown]
  - Feeling abnormal [Unknown]
  - Cardiac disorder [Unknown]
  - Gastrointestinal disorder [Not Recovered/Not Resolved]
  - Infusion site scar [Unknown]
  - Illness [Not Recovered/Not Resolved]
  - Bronchitis [Unknown]
  - Gastroenteritis viral [Unknown]
  - Calcinosis [Unknown]
  - Weight increased [Unknown]
  - Influenza [Unknown]
  - Anxiety [Unknown]
  - Asthma [Unknown]
  - Fatigue [Unknown]
  - Drug ineffective [Unknown]
  - Cystitis [Unknown]
  - Pruritus allergic [Unknown]
  - Nasopharyngitis [Unknown]
  - Sinusitis [Unknown]
  - Scar [Unknown]
  - COVID-19 [Recovering/Resolving]
  - Adrenal disorder [Unknown]
  - Poor venous access [Unknown]
  - Product dose omission issue [Unknown]
  - Incorrect dose administered [Unknown]
  - Cough [Unknown]
  - Malaise [Unknown]
  - Dyspnoea [Unknown]
